FAERS Safety Report 17901850 (Version 2)
Quarter: 2020Q2

REPORT INFORMATION
  Report Type: Spontaneous
  Country: IT (occurrence: IT)
  Receive Date: 20200616
  Receipt Date: 20200624
  Transmission Date: 20200714
  Serious: Yes (Hospitalization)
  Sender: FDA-Public Use
  Company Number: IT-PFIZER INC-2020230616

PATIENT
  Age: 17 Year
  Sex: Female
  Weight: 45 kg

DRUGS (4)
  1. BRINTELLIX [Suspect]
     Active Substance: VORTIOXETINE HYDROBROMIDE
     Dosage: 4 DF
     Route: 048
     Dates: start: 20190725, end: 20190725
  2. LYRICA [Suspect]
     Active Substance: PREGABALIN
     Dosage: 6 DF, TOTAL
     Route: 048
     Dates: start: 20190725, end: 20190725
  3. BRINTELLIX [Suspect]
     Active Substance: VORTIOXETINE HYDROBROMIDE
     Dosage: 4 DF
     Route: 048
     Dates: start: 20190725, end: 20190725
  4. TACHIPIRINA [Suspect]
     Active Substance: ACETAMINOPHEN
     Dosage: 20 DF
     Route: 048
     Dates: start: 20190725, end: 20190725

REACTIONS (5)
  - Vomiting [Not Recovered/Not Resolved]
  - Hypotonic-hyporesponsive episode [Not Recovered/Not Resolved]
  - Diplopia [Not Recovered/Not Resolved]
  - Somnolence [Not Recovered/Not Resolved]
  - Drug abuse [Not Recovered/Not Resolved]

NARRATIVE: CASE EVENT DATE: 20190725
